FAERS Safety Report 23938830 (Version 1)
Quarter: 2024Q2

REPORT INFORMATION
  Report Type: Spontaneous
  Country: US (occurrence: US)
  Receive Date: 20240604
  Receipt Date: 20240604
  Transmission Date: 20240716
  Serious: Yes (Other)
  Sender: FDA-Public Use
  Company Number: US-BRISTOL-MYERS SQUIBB COMPANY-2024-089145

PATIENT
  Age: 50 Year
  Sex: Female

DRUGS (1)
  1. OPDIVO [Suspect]
     Active Substance: NIVOLUMAB
     Indication: Anal squamous cell carcinoma
     Dosage: DOSE : 480MG;     FREQ : EVERY 4 WEEKS

REACTIONS (2)
  - Malignant neoplasm progression [Unknown]
  - Off label use [Unknown]
